FAERS Safety Report 16530979 (Version 10)
Quarter: 2020Q2

REPORT INFORMATION
  Report Type: Spontaneous
  Country: CA (occurrence: CA)
  Receive Date: 20190705
  Receipt Date: 20200611
  Transmission Date: 20200713
  Serious: Yes (Other)
  Sender: FDA-Public Use
  Company Number: CA-CELLTRION INC.-2019CA018465

PATIENT

DRUGS (35)
  1. INFLECTRA [Suspect]
     Active Substance: INFLIXIMAB-DYYB
     Dosage: 450 MG, 0, 2, 6, THEN EVERY 8 WEEKS
     Route: 042
     Dates: start: 20190501, end: 20190501
  2. INFLECTRA [Suspect]
     Active Substance: INFLIXIMAB-DYYB
     Dosage: 450 MG, 0, 2, 6, THEN EVERY 8 WEEKS
     Route: 042
     Dates: start: 20190826, end: 20190826
  3. INFLECTRA [Suspect]
     Active Substance: INFLIXIMAB-DYYB
     Dosage: 450 MG, 0, 2, 6, THEN EVERY 8 WEEKS
     Route: 042
     Dates: start: 20191021, end: 20191021
  4. NALTREXONE [Concomitant]
     Active Substance: NALTREXONE
     Dosage: 2 MG, 1X/DAY (LOW-DOSE)
     Route: 065
  5. FOLIC ACID. [Concomitant]
     Active Substance: FOLIC ACID
     Dosage: 5 MG, 1X/DAY
     Route: 065
  6. DIMENHYDRINATE. [Concomitant]
     Active Substance: DIMENHYDRINATE
     Indication: PREMEDICATION
     Dosage: 50 MG 15-30 MINS PRIOR TO INFUSION
     Route: 048
  7. INFLECTRA [Suspect]
     Active Substance: INFLIXIMAB-DYYB
     Indication: PSORIATIC ARTHROPATHY
     Dosage: 3 MG/KG, EVERY 8 WEEKS
  8. INFLECTRA [Suspect]
     Active Substance: INFLIXIMAB-DYYB
     Dosage: 450 MG, 0, 2, 6 WEEKS, THEN EVERY 8 WEEKS
     Route: 042
     Dates: start: 20200416, end: 20200416
  9. IRON [Concomitant]
     Active Substance: IRON
     Dosage: UNK, 1X/DAY
     Route: 065
  10. ACETAMINOPHEN. [Concomitant]
     Active Substance: ACETAMINOPHEN
     Indication: PREMEDICATION
     Dosage: 325-650 MG 15-30MINS PRIOR TO INFUSION
     Route: 048
  11. HYDROMORPHONE [HYDROMORPHONE HYDROCHLORIDE] [Concomitant]
     Active Substance: HYDROMORPHONE HYDROCHLORIDE
     Dosage: 15 MG, 1X/DAY
     Route: 065
  12. PANTOLOC [PANTOPRAZOLE] [Concomitant]
     Active Substance: PANTOPRAZOLE SODIUM
     Dosage: 40 MG, 1X/DAY
     Route: 065
  13. VOLTAREN [Concomitant]
     Active Substance: DICLOFENAC SODIUM
     Dosage: 150 MG, 1X/DAY
     Dates: start: 2010
  14. DIPHENHYDRAMINE. [Concomitant]
     Active Substance: DIPHENHYDRAMINE
     Dosage: 25-50 MG 15-30 MINS PRIOR TO INFUSION (MAX 50 MG)
     Route: 042
  15. INFLECTRA [Suspect]
     Active Substance: INFLIXIMAB-DYYB
     Dosage: 450 MG, 0, 2, 6, THEN EVERY 8 WEEKS
     Route: 042
     Dates: start: 20190320, end: 20190320
  16. METHOTREXATE. [Concomitant]
     Active Substance: METHOTREXATE
     Dosage: 0.8 ML (8 MG), WEEKLY
     Route: 058
     Dates: start: 2014
  17. MARVELON [Concomitant]
     Active Substance: DESOGESTREL\ETHINYL ESTRADIOL
     Dosage: UNK
     Route: 065
  18. HYDROCHLOROTHIAZIDE. [Concomitant]
     Active Substance: HYDROCHLOROTHIAZIDE
     Dosage: 25 MG, 1X/DAY
  19. ADVIL [IBUPROFEN] [Concomitant]
     Active Substance: IBUPROFEN
     Dosage: UNK, AS NEEDED
  20. NAPROXEN. [Concomitant]
     Active Substance: NAPROXEN
     Dosage: UNK
     Route: 065
  21. DIPHENHYDRAMINE. [Concomitant]
     Active Substance: DIPHENHYDRAMINE
     Indication: PREMEDICATION
     Dosage: 25-50 MG 15-30 MINS PRIOR TO INFUSION (MAX 50 MG)
     Route: 048
  22. DIMENHYDRINATE. [Concomitant]
     Active Substance: DIMENHYDRINATE
     Dosage: 50 MG 15-30 MINS PRIOR TO INFUSION
     Route: 042
  23. INFLECTRA [Suspect]
     Active Substance: INFLIXIMAB-DYYB
     Dosage: 450 MG, 0, 2, 6 WEEKS, THEN EVERY 8 WEEKS
     Route: 042
     Dates: start: 20191216
  24. INFLECTRA [Suspect]
     Active Substance: INFLIXIMAB-DYYB
     Dosage: 450 MG, 0, 2, 6 WEEKS, THEN EVERY 8 WEEKS
     Route: 042
     Dates: start: 20200219
  25. METHOTREXATE. [Concomitant]
     Active Substance: METHOTREXATE
     Dosage: 0.8 ML, WEEKLY
     Route: 058
     Dates: start: 20160627
  26. SULFASALAZINE. [Concomitant]
     Active Substance: SULFASALAZINE
     Dosage: 3000 MG, 1X/DAY 1500 MG, 2X/DAY [500 MG 3 TABLETS BID (TWICE A DAY) ]
     Route: 065
     Dates: start: 20141219
  27. TYLENOL [Concomitant]
     Active Substance: ACETAMINOPHEN
     Dosage: UNK, AS NEEDED
     Route: 065
  28. INFLECTRA [Suspect]
     Active Substance: INFLIXIMAB-DYYB
     Dosage: 450 MG, 0, 2, 6, THEN EVERY 8 WEEKS
     Route: 042
     Dates: start: 20190403, end: 20190403
  29. GABAPENTIN. [Concomitant]
     Active Substance: GABAPENTIN
     Dosage: 300 MG, 2X/DAY
     Dates: start: 2018
  30. AMITRIPTYLINE [Concomitant]
     Active Substance: AMITRIPTYLINE
     Dosage: 50 MG, 1X/DAY (AT BEDTIME)
     Route: 065
  31. CBD OIL [Concomitant]
     Active Substance: CANNABIDIOL\HERBALS
     Dosage: UNK, AS NEEDED
     Route: 065
  32. HYDROCORTISONE. [Concomitant]
     Active Substance: HYDROCORTISONE
     Indication: PREMEDICATION
     Dosage: 100 MG 15-30 MIN PRIOR TO INFUSION
     Route: 042
  33. VITAMIN B12 [Concomitant]
     Active Substance: CYANOCOBALAMIN
     Dosage: UNK
     Route: 065
  34. ALTACE [Concomitant]
     Active Substance: RAMIPRIL
     Indication: HYPERTENSION
     Dosage: 5 MG, DAILY
  35. ERELZI [Concomitant]
     Active Substance: ETANERCEPT-SZZS
     Dosage: UNK

REACTIONS (16)
  - Gait inability [Unknown]
  - Chest discomfort [Unknown]
  - Heart rate irregular [Unknown]
  - Intentional product use issue [Unknown]
  - Infusion related reaction [Unknown]
  - Palpitations [Unknown]
  - Respiratory rate increased [Unknown]
  - Off label use [Unknown]
  - Blood pressure fluctuation [Unknown]
  - Hypertension [Unknown]
  - Infusion site pruritus [Recovering/Resolving]
  - Inappropriate schedule of product administration [Unknown]
  - Smear cervix abnormal [Unknown]
  - Back pain [Unknown]
  - Product use issue [Unknown]
  - Dysstasia [Unknown]

NARRATIVE: CASE EVENT DATE: 2019
